FAERS Safety Report 8148712-0 (Version None)
Quarter: 2012Q1

REPORT INFORMATION
  Report Type: 
  Country: None (occurrence: None)
  Receive Date: 20120218
  Receipt Date: 20110701
  Transmission Date: 20120608
  Serious: No
  Sender: FDA-Public Use
  Company Number: US-ALLERGAN-1108790US

PATIENT
  Age: 44 Year
  Sex: Female
  Weight: 68.027 kg

DRUGS (1)
  1. BOTOX COSMETIC [Suspect]
     Indication: SKIN WRINKLING
     Dosage: 20 UNITS, SINGLE
     Route: 030
     Dates: start: 20110608, end: 20110608

REACTIONS (3)
  - SWELLING [None]
  - INJECTION SITE PRURITUS [None]
  - HYPERSENSITIVITY [None]
